FAERS Safety Report 5143387-7 (Version None)
Quarter: 2006Q4

REPORT INFORMATION
  Report Type: 
  Country: None (occurrence: None)
  Receive Date: 20061030
  Receipt Date: 20061027
  Transmission Date: 20070319
  Serious: Yes (Hospitalization)
  Sender: FDA-Public Use
  Company Number: 36560

PATIENT
  Age: 8 Month
  Sex: Male

DRUGS (1)
  1. TIMOLOL MALEATE [Suspect]

REACTIONS (15)
  - ACCIDENTAL EXPOSURE [None]
  - CARDIOTOXICITY [None]
  - DEPRESSED LEVEL OF CONSCIOUSNESS [None]
  - DRUG INTERACTION [None]
  - HEART RATE DECREASED [None]
  - HYPOTENSION [None]
  - HYPOTONIA [None]
  - LETHARGY [None]
  - METABOLIC ACIDOSIS [None]
  - MIOSIS [None]
  - NERVOUS SYSTEM DISORDER [None]
  - PERIPHERAL COLDNESS [None]
  - PULSE ABNORMAL [None]
  - RESPIRATORY RATE DECREASED [None]
  - WRONG DRUG ADMINISTERED [None]
